FAERS Safety Report 14700049 (Version 1)
Quarter: 2018Q1

REPORT INFORMATION
  Report Type: Spontaneous
  Country: DE (occurrence: DE)
  Receive Date: 20180330
  Receipt Date: 20180330
  Transmission Date: 20180509
  Serious: Yes (Death, Disabling, Other)
  Sender: FDA-Public Use
  Company Number: DE-B.I. PHARMACEUTICALS,INC./RIDGEFIELD-2018-BI-017556

PATIENT
  Age: 80 Year
  Sex: Female

DRUGS (1)
  1. PRADAXA [Suspect]
     Active Substance: DABIGATRAN ETEXILATE MESYLATE
     Indication: ATRIAL FIBRILLATION
     Route: 065
     Dates: end: 20170104

REACTIONS (10)
  - Sepsis [Fatal]
  - Vascular graft [Unknown]
  - Tracheostomy [Unknown]
  - Cardiovascular disorder [Unknown]
  - Somnolence [Unknown]
  - Nosocomial infection [Fatal]
  - Cartilage injury [Unknown]
  - Decubitus ulcer [Fatal]
  - Cerebrovascular accident [Unknown]
  - Aortic valve repair [Unknown]

NARRATIVE: CASE EVENT DATE: 20170105
